FAERS Safety Report 14553589 (Version 1)
Quarter: 2018Q1

REPORT INFORMATION
  Report Type: Spontaneous
  Country: US (occurrence: US)
  Receive Date: 20180220
  Receipt Date: 20180220
  Transmission Date: 20180509
  Serious: No
  Sender: FDA-Public Use
  Company Number: US-FERRINGPH-2017FE00130

PATIENT
  Sex: Female

DRUGS (1)
  1. NOVAREL [Suspect]
     Active Substance: CHORIOGONADOTROPIN ALFA
     Indication: OVULATION INDUCTION
     Dosage: 5000 UNITS, ONCE/SINGLE
     Route: 065
     Dates: start: 20161211, end: 20161211

REACTIONS (2)
  - Drug ineffective [Unknown]
  - Product quality issue [Unknown]

NARRATIVE: CASE EVENT DATE: 20161213
